FAERS Safety Report 24186735 (Version 1)
Quarter: 2024Q3

REPORT INFORMATION
  Report Type: Spontaneous
  Country: GB (occurrence: GB)
  Receive Date: 20240808
  Receipt Date: 20240808
  Transmission Date: 20241016
  Serious: Yes (Disabling, Other)
  Sender: MSN LABORATORIES
  Company Number: GB-MHRA-TPP19665692C21550945YC1721826781416

PATIENT

DRUGS (10)
  1. ATORVASTATIN [Suspect]
     Active Substance: ATORVASTATIN
     Indication: Ill-defined disorder
     Route: 065
  2. ATORVASTATIN [Concomitant]
     Active Substance: ATORVASTATIN
     Indication: Ill-defined disorder
     Dosage: TAKE ONE TABLET AT NIGHT
     Route: 065
     Dates: start: 20240610
  3. LOSARTAN [Concomitant]
     Active Substance: LOSARTAN\LOSARTAN POTASSIUM
     Indication: Ill-defined disorder
     Dosage: TAKE ONE DAILY
     Route: 065
     Dates: start: 20240215
  4. TICAGRELOR [Concomitant]
     Active Substance: TICAGRELOR
     Indication: Ill-defined disorder
     Dosage: TAKE ONE TABLET TWICE A DAY UNTIL 03.06.2025
     Route: 065
     Dates: start: 20240610
  5. ASPIRIN [Concomitant]
     Active Substance: ASPIRIN
     Indication: Ill-defined disorder
     Dosage: TAKE ONE IN THE MORNING
     Route: 065
     Dates: start: 20240610
  6. BISOPROLOL [Concomitant]
     Active Substance: BISOPROLOL\BISOPROLOL FUMARATE
     Indication: Ill-defined disorder
     Dosage: TAKE ONE TABLET IN THE MORNING
     Route: 065
     Dates: start: 20240610, end: 20240718
  7. FUROSEMIDE [Concomitant]
     Active Substance: FUROSEMIDE
     Indication: Ill-defined disorder
     Dosage: TAKE ONE TABLET IN THE MORNING
     Route: 065
     Dates: start: 20240610
  8. NITROGLYCERIN [Concomitant]
     Active Substance: NITROGLYCERIN
     Indication: Ill-defined disorder
     Dosage: ONE-TWO SPRAY WHEN NEEDED
     Route: 065
     Dates: start: 20240610
  9. LANSOPRAZOLE [Concomitant]
     Active Substance: LANSOPRAZOLE
     Indication: Ill-defined disorder
     Dosage: TAKE ONE CAPSULE IN THE MORNING
     Route: 065
     Dates: start: 20240610
  10. MACROGOL COMPOUND [Concomitant]
     Indication: Ill-defined disorder
     Dosage: TAKE ONE SACHET THREE TIMES A DAY AS NEEDED
     Route: 065
     Dates: start: 20240610, end: 20240708

REACTIONS (2)
  - Hallucination [Recovered/Resolved]
  - Confusional state [Recovered/Resolved]
